FAERS Safety Report 14998294 (Version 1)
Quarter: 2018Q2

REPORT INFORMATION
  Report Type: Spontaneous
  Country: TR (occurrence: TR)
  Receive Date: 20180611
  Receipt Date: 20180611
  Transmission Date: 20180711
  Serious: Yes (Hospitalization, Other)
  Sender: FDA-Public Use
  Company Number: PHHY2018TR070152

PATIENT
  Age: 15 Year
  Sex: Female

DRUGS (1)
  1. METFORMIN [Suspect]
     Active Substance: METFORMIN HYDROCHLORIDE
     Indication: PRODUCT USED FOR UNKNOWN INDICATION
     Dosage: 36 DF, UNK (1000MG)
     Route: 065

REACTIONS (5)
  - Somnolence [Recovering/Resolving]
  - Lactic acidosis [Recovering/Resolving]
  - Tachypnoea [Recovering/Resolving]
  - Dehydration [Recovering/Resolving]
  - Toxicity to various agents [Recovering/Resolving]
